FAERS Safety Report 25606756 (Version 1)
Quarter: 2025Q3

REPORT INFORMATION
  Report Type: Spontaneous
  Country: US (occurrence: US)
  Receive Date: 20250725
  Receipt Date: 20250725
  Transmission Date: 20251020
  Serious: Yes (Death, Other)
  Sender: AMGEN
  Company Number: US-AMGEN-USASP2025142294

PATIENT

DRUGS (2)
  1. EPOETIN ALFA [Suspect]
     Active Substance: ERYTHROPOIETIN
     Indication: Acute kidney injury
     Route: 065
  2. DARBEPOETIN ALFA [Suspect]
     Active Substance: DARBEPOETIN ALFA
     Indication: Acute kidney injury
     Route: 065

REACTIONS (7)
  - Acute kidney injury [Fatal]
  - Acute myocardial infarction [Unknown]
  - Atrial fibrillation [Unknown]
  - Cardiac operation [Unknown]
  - Anaemia [Unknown]
  - Iron deficiency anaemia [Unknown]
  - Atrial flutter [Unknown]
